FAERS Safety Report 25396083 (Version 1)
Quarter: 2025Q2

REPORT INFORMATION
  Report Type: Spontaneous
  Country: BR (occurrence: BR)
  Receive Date: 20250604
  Receipt Date: 20250604
  Transmission Date: 20250716
  Serious: Yes (Other)
  Sender: SANDOZ
  Company Number: BR-002147023-PHHY2017BR031652

PATIENT
  Sex: Female
  Weight: 69 kg

DRUGS (25)
  1. ILARIS [Suspect]
     Active Substance: CANAKINUMAB
     Dosage: 150 MG, QMO (1 ML (1) LIQ VIAL)
     Route: 058
  2. ILARIS [Suspect]
     Active Substance: CANAKINUMAB
     Dosage: 150 MG, QMO (1 ML (1) LIQ VIAL)
     Route: 058
  3. ILARIS [Suspect]
     Active Substance: CANAKINUMAB
     Indication: Arthritis
     Dosage: 150 MG, QMO
     Route: 058
     Dates: start: 201503
  4. ILARIS [Suspect]
     Active Substance: CANAKINUMAB
     Indication: Still^s disease
     Dosage: 150 MG, QMO
     Route: 058
     Dates: start: 201405
  5. ILARIS [Suspect]
     Active Substance: CANAKINUMAB
     Dosage: 150 MG, QMO
     Route: 058
     Dates: start: 20171016
  6. ILARIS [Suspect]
     Active Substance: CANAKINUMAB
     Dosage: 150 MG, QMO
     Route: 058
  7. ILARIS [Suspect]
     Active Substance: CANAKINUMAB
     Route: 058
     Dates: start: 20171117
  8. ZOLPIDEM [Suspect]
     Active Substance: ZOLPIDEM TARTRATE
     Indication: Product used for unknown indication
     Dosage: 1 DOSAGE FORM, QD (AT NIGHT)
     Route: 065
  9. BROMAZEPAM [Concomitant]
     Active Substance: BROMAZEPAM
     Indication: Product used for unknown indication
     Route: 065
  10. CYCLOBENZAPRINE [Concomitant]
     Active Substance: CYCLOBENZAPRINE
     Indication: Fibromyalgia
     Dosage: 1 DF, QD (1 MONTH AGO)
     Route: 048
  11. DESVENLAFAXINE [Concomitant]
     Active Substance: DESVENLAFAXINE
     Indication: Product used for unknown indication
     Dosage: 1 DOSAGE FORM, QD (TABLET)
     Route: 065
  12. DROSPIRENONE\ETHINYL ESTRADIOL [Concomitant]
     Active Substance: DROSPIRENONE\ETHINYL ESTRADIOL
     Indication: Product used for unknown indication
     Dosage: 1 DOSAGE FORM, QD (TABLET)
     Route: 065
  13. GLIFAGE [Concomitant]
     Active Substance: METFORMIN HYDROCHLORIDE
     Indication: Product used for unknown indication
     Dosage: 500 MG, QD (500 MG 1 TABLET)
     Route: 065
  14. KETOPROFEN [Concomitant]
     Active Substance: KETOPROFEN
     Indication: Still^s disease
     Dosage: 320 MG, QD
     Route: 048
  15. METHOTREXATE [Concomitant]
     Active Substance: METHOTREXATE
     Indication: Still^s disease
     Dosage: 2.5 MG, (6 TABLETS A WEEK)
     Route: 048
     Dates: start: 2015
  16. METHOTREXATE [Concomitant]
     Active Substance: METHOTREXATE
     Indication: Rheumatoid arthritis
     Dosage: 6 DF, QW
     Route: 048
     Dates: start: 2012
  17. NIMESULIDE [Concomitant]
     Active Substance: NIMESULIDE
     Indication: Pain
     Dosage: 1 DF (100 MG), QD (STARTED 6 YEARS AGO)
     Route: 048
  18. PREDNISONE [Concomitant]
     Active Substance: PREDNISONE
     Indication: Rheumatoid arthritis
     Dosage: 1 DF (10 MG), QD
     Route: 048
     Dates: start: 2004
  19. PREDNISONE [Concomitant]
     Active Substance: PREDNISONE
     Dosage: 1 DF, QD (5 MG A DAY AND 10 MG A DAY  (ALTERNATE DAYS)
     Route: 048
  20. PREDNISONE [Concomitant]
     Active Substance: PREDNISONE
     Dosage: 2 DF (5 MG TABLETS), QD
     Route: 048
     Dates: start: 2006
  21. PREDNISONE [Concomitant]
     Active Substance: PREDNISONE
     Indication: Pain
     Dosage: 2 DF, QD
     Route: 048
     Dates: start: 2006
  22. ZOLPIDEM TARTRATE [Concomitant]
     Active Substance: ZOLPIDEM TARTRATE
     Indication: Insomnia
     Dosage: 1 DF (10 MG), QD
     Route: 048
     Dates: start: 2013
  23. VENLAFAXINE [Concomitant]
     Active Substance: VENLAFAXINE HYDROCHLORIDE
     Indication: Anxiety disorder
     Dosage: 1 DF (150 MG), QD
     Route: 048
     Dates: start: 2016
  24. ZOLPIDEM [Concomitant]
     Active Substance: ZOLPIDEM TARTRATE
     Indication: Product used for unknown indication
     Dosage: 10 MG, QD (10 MG 1 TABLET AT NIGHT)
     Route: 065
  25. ZOLPIDEM TARTRATE [Concomitant]
     Active Substance: ZOLPIDEM TARTRATE
     Indication: Insomnia
     Dosage: 1 DF (150 MG), QD
     Route: 048

REACTIONS (32)
  - Joint effusion [Recovering/Resolving]
  - Joint swelling [Recovering/Resolving]
  - Immunodeficiency [Recovering/Resolving]
  - Chills [Recovering/Resolving]
  - Urticaria [Recovering/Resolving]
  - Pruritus [Unknown]
  - Arthralgia [Recovering/Resolving]
  - Fatigue [Recovering/Resolving]
  - Musculoskeletal stiffness [Not Recovered/Not Resolved]
  - Immune system disorder [Recovered/Resolved]
  - Weight decreased [Unknown]
  - Sensitivity to weather change [Recovered/Resolved]
  - Osteoarthritis [Recovering/Resolving]
  - Candida infection [Recovering/Resolving]
  - Vulvovaginal pruritus [Recovering/Resolving]
  - Chronic sinusitis [Recovered/Resolved]
  - Nasal discharge discolouration [Recovered/Resolved]
  - Rhinorrhoea [Recovered/Resolved]
  - Concomitant disease aggravated [Recovered/Resolved]
  - Viral infection [Unknown]
  - Acute sinusitis [Unknown]
  - Hyperhidrosis [Unknown]
  - Pyrexia [Recovering/Resolving]
  - Malaise [Recovered/Resolved]
  - Pain [Recovering/Resolving]
  - Herpes zoster [Unknown]
  - Influenza [Recovered/Resolved]
  - Headache [Recovered/Resolved]
  - Rhinitis [Recovered/Resolved]
  - Cough [Not Recovered/Not Resolved]
  - Influenza [Unknown]
  - Inappropriate schedule of product administration [Unknown]

NARRATIVE: CASE EVENT DATE: 20170101
